FAERS Safety Report 8378875-3 (Version None)
Quarter: 2012Q2

REPORT INFORMATION
  Report Type: 
  Country: None (occurrence: None)
  Receive Date: 20120522
  Receipt Date: 20120522
  Transmission Date: 20120825
  Serious: No
  Sender: FDA-Public Use
  Company Number: None

PATIENT
  Age: 73 Year
  Sex: Female
  Weight: 118 kg

DRUGS (17)
  1. NYSTATIN [Concomitant]
  2. ALBUTEROL SULFATE AND IPRATROPIUM BROMIDE [Concomitant]
  3. REGULAR INSULIN [Concomitant]
  4. CLOTRIMAZOLE [Concomitant]
  5. POTASSIUM CHLORIDE [Concomitant]
  6. METOPROLOL [Concomitant]
  7. MAGNESIUM OXIDE [Concomitant]
  8. AMIODARONE HCL [Concomitant]
  9. VANCOMYCIN [Concomitant]
  10. DOCUSATE [Concomitant]
  11. PREDNISONE [Concomitant]
  12. ALBUMINAR-25 [Suspect]
     Indication: URINE OUTPUT DECREASED
     Dosage: 25G X 1 IV
     Route: 042
     Dates: start: 20120419, end: 20120419
  13. ALBUMINAR-25 [Suspect]
     Indication: URINE OUTPUT DECREASED
     Dosage: 25G X 1 IV
     Route: 042
     Dates: start: 20120429, end: 20120429
  14. HEPARIN [Concomitant]
  15. FUROSEMIDE [Concomitant]
  16. ASPIRIN [Concomitant]
  17. EUCERIN [Concomitant]

REACTIONS (1)
  - BLOOD PRESSURE DECREASED [None]
